FAERS Safety Report 10803493 (Version 1)
Quarter: 2015Q1

REPORT INFORMATION
  Report Type: Spontaneous
  Country: DE (occurrence: DE)
  Receive Date: 20150217
  Receipt Date: 20150217
  Transmission Date: 20150721
  Serious: Yes (Other)
  Sender: FDA-Public Use
  Company Number: DE-TEVA-541259GER

PATIENT
  Age: 40 Year
  Sex: Male

DRUGS (1)
  1. METFORMIN [Suspect]
     Active Substance: METFORMIN HYDROCHLORIDE
     Indication: SUICIDE ATTEMPT
     Dosage: 65G
     Route: 048

REACTIONS (3)
  - Suicide attempt [Recovering/Resolving]
  - Metabolic acidosis [Recovering/Resolving]
  - Overdose [Recovering/Resolving]
